FAERS Safety Report 6546291-2 (Version None)
Quarter: 2010Q1

REPORT INFORMATION
  Report Type: 
  Country: None (occurrence: None)
  Receive Date: 20100122
  Receipt Date: 20100114
  Transmission Date: 20100710
  Serious: Yes (Other)
  Sender: FDA-Public Use
  Company Number: US-ROCHE-679683

PATIENT
  Sex: Female
  Weight: 90.9 kg

DRUGS (5)
  1. BONIVA [Suspect]
     Indication: OSTEOPENIA
     Route: 048
     Dates: start: 20050101, end: 20091001
  2. COZAAR [Concomitant]
  3. HYDROCHLOROTHIAZIDE [Concomitant]
  4. POTASSIUM [Concomitant]
  5. METHADONE [Concomitant]

REACTIONS (3)
  - BONE DISORDER [None]
  - IMPAIRED HEALING [None]
  - PAIN [None]
